FAERS Safety Report 6177885-4 (Version None)
Quarter: 2009Q2

REPORT INFORMATION
  Report Type: 
  Country: None (occurrence: None)
  Receive Date: 20090504
  Receipt Date: 20090423
  Transmission Date: 20091009
  Serious: Yes (Other)
  Sender: FDA-Public Use
  Company Number: US-BAYER-200919208NA

PATIENT
  Age: 34 Year
  Sex: Male
  Weight: 118 kg

DRUGS (1)
  1. MAGNEVIST [Suspect]
     Indication: NUCLEAR MAGNETIC RESONANCE IMAGING BRAIN
     Dosage: TOTAL DAILY DOSE: 20 ML  UNIT DOSE: 20 ML
     Dates: start: 20090423, end: 20090423

REACTIONS (6)
  - DYSPNOEA [None]
  - FLUSHING [None]
  - NASAL CONGESTION [None]
  - ORAL DISCOMFORT [None]
  - PARAESTHESIA [None]
  - SWELLING FACE [None]
